FAERS Safety Report 12186184 (Version 1)
Quarter: 2016Q1

REPORT INFORMATION
  Report Type: Spontaneous
  Country: US (occurrence: US)
  Receive Date: 20160317
  Receipt Date: 20160317
  Transmission Date: 20160526
  Serious: No
  Sender: FDA-Public Use
  Company Number: US-009507513-1603USA006451

PATIENT
  Sex: Female

DRUGS (1)
  1. SIVEXTRO [Suspect]
     Active Substance: TEDIZOLID PHOSPHATE
     Indication: URINARY TRACT INFECTION
     Dosage: 200 MG, ONCE DAILY FOR 6 DAYS/ USED ON AN AS NEEDED BASIS, OCCURRED ^ABOUT EVERY OTHER MONTH^
     Route: 048

REACTIONS (2)
  - Product use issue [Unknown]
  - Inappropriate schedule of drug administration [Unknown]
